FAERS Safety Report 6256706-5 (Version None)
Quarter: 2009Q3

REPORT INFORMATION
  Report Type: 
  Country: None (occurrence: None)
  Receive Date: 20090706
  Receipt Date: 20090626
  Transmission Date: 20100115
  Serious: Yes (Hospitalization)
  Sender: FDA-Public Use
  Company Number: US-BIOGENIDEC-2009BI016461

PATIENT
  Age: 40 Year
  Sex: Female

DRUGS (1)
  1. TYSABRI [Suspect]
     Indication: MULTIPLE SCLEROSIS
     Route: 042
     Dates: start: 20080908

REACTIONS (10)
  - ASTHENIA [None]
  - ASTHMA [None]
  - BACK PAIN [None]
  - GAIT DISTURBANCE [None]
  - HYPERTENSION [None]
  - MULTIPLE SCLEROSIS [None]
  - MULTIPLE SCLEROSIS RELAPSE [None]
  - OBESITY [None]
  - PAIN IN EXTREMITY [None]
  - RECTAL HAEMORRHAGE [None]
